FAERS Safety Report 7172936-2 (Version None)
Quarter: 2010Q4

REPORT INFORMATION
  Report Type: 
  Country: None (occurrence: None)
  Receive Date: 20101219
  Receipt Date: 20100217
  Transmission Date: 20110411
  Serious: No
  Sender: FDA-Public Use
  Company Number: US-AMGEN-KDL393433

PATIENT

DRUGS (7)
  1. ENBREL [Suspect]
     Indication: PRODUCT USED FOR UNKNOWN INDICATION
     Dosage: 50 MG, 2 TIMES/WK
     Route: 058
  2. CALCIPOTRIENE [Concomitant]
     Dosage: UNK UNK, UNK
  3. SUMATRIPTAN [Concomitant]
     Dosage: 50 MG, UNK
  4. HYDROXYZINE HCL [Concomitant]
     Dosage: 25 MG, UNK
  5. FLUOXETINE HYDROCHLORIDE [Concomitant]
     Dosage: 20 MG, UNK
  6. UNSPECIFIED MEDICATION [Concomitant]
     Dosage: 150 MG, UNK
  7. SULFACETAMIDE SODIUM [Concomitant]

REACTIONS (3)
  - INJECTION SITE ERYTHEMA [None]
  - INJECTION SITE HAEMATOMA [None]
  - INJECTION SITE REACTION [None]
